FAERS Safety Report 25509332 (Version 1)
Quarter: 2025Q3

REPORT INFORMATION
  Report Type: Spontaneous
  Country: US (occurrence: US)
  Receive Date: 20250703
  Receipt Date: 20250703
  Transmission Date: 20251021
  Serious: No
  Sender: PFIZER
  Company Number: US-PFIZER INC-PV202500079360

PATIENT
  Age: 71 Year
  Sex: Female

DRUGS (2)
  1. ESTRADIOL [Suspect]
     Active Substance: ESTRADIOL
  2. PROGESTERONE [Suspect]
     Active Substance: PROGESTERONE

REACTIONS (1)
  - Drug ineffective [Unknown]
